FAERS Safety Report 23514483 (Version 1)
Quarter: 2024Q1

REPORT INFORMATION
  Report Type: Spontaneous
  Country: US (occurrence: US)
  Receive Date: 20240212
  Receipt Date: 20240212
  Transmission Date: 20240409
  Serious: No
  Sender: FDA-Public Use
  Company Number: US-GILEAD-2024-0661750

PATIENT
  Age: 50 Year
  Sex: Male

DRUGS (2)
  1. LENACAPAVIR [Suspect]
     Active Substance: LENACAPAVIR
     Indication: HIV infection
     Dosage: 927 MG SUBCUTANEOUSLY EVERY 6 MONTHS
     Route: 058
     Dates: start: 202302
  2. LENACAPAVIR [Suspect]
     Active Substance: LENACAPAVIR
     Dosage: 927 MG SUBCUTANEOUSLY EVERY 6 MONTHS
     Route: 058
     Dates: start: 2023

REACTIONS (2)
  - Injection site nodule [Not Recovered/Not Resolved]
  - Injection site nodule [Not Recovered/Not Resolved]

NARRATIVE: CASE EVENT DATE: 20230101
